FAERS Safety Report 10314780 (Version 1)
Quarter: 2014Q3

REPORT INFORMATION
  Report Type: Spontaneous
  Country: US (occurrence: US)
  Receive Date: 20140718
  Receipt Date: 20140718
  Transmission Date: 20150326
  Serious: No
  Sender: FDA-Public Use
  Company Number: US-ASTRAZENECA-2014SE23334

PATIENT
  Age: 25 Year
  Sex: Female
  Weight: 45.4 kg

DRUGS (4)
  1. QUETIAPINE [Suspect]
     Active Substance: QUETIAPINE
     Route: 048
     Dates: start: 201207
  2. LAMICTAL [Concomitant]
     Active Substance: LAMOTRIGINE
     Route: 048
  3. KLONIPIN [Concomitant]
     Active Substance: CLONAZEPAM
     Route: 048
  4. HYDROXYZINE PAMOATE. [Concomitant]
     Active Substance: HYDROXYZINE PAMOATE
     Dosage: 50 MG TID PRN
     Route: 048

REACTIONS (2)
  - Amino acid level increased [Unknown]
  - Organic acid analysis abnormal [Unknown]
